FAERS Safety Report 21960141 (Version 2)
Quarter: 2024Q1

REPORT INFORMATION
  Report Type: Spontaneous
  Country: FR (occurrence: FR)
  Receive Date: 20230207
  Receipt Date: 20240201
  Transmission Date: 20240409
  Serious: Yes (Hospitalization)
  Sender: FDA-Public Use
  Company Number: FR-AFSSAPS-RS2023000058

PATIENT
  Age: 49 Year
  Sex: Male
  Weight: 96 kg

DRUGS (2)
  1. CEFTRIAXONE [Suspect]
     Active Substance: CEFTRIAXONE\CEFTRIAXONE SODIUM
     Indication: Lyme disease
     Dosage: 4G/DAY FOR 7 DAYS IV THEN 2G/DAY IM
     Route: 040
     Dates: start: 20221228, end: 20230111
  2. PREGABALIN [Suspect]
     Active Substance: PREGABALIN
     Indication: Chest pain
     Dosage: 75MG X 3/DAY THEN 100MG X 3/DAY
     Route: 048
     Dates: start: 20221212, end: 20230111

REACTIONS (2)
  - Pyrexia [Recovered/Resolved]
  - Rash maculo-papular [Recovered/Resolved]

NARRATIVE: CASE EVENT DATE: 20230109
